FAERS Safety Report 16570338 (Version 2)
Quarter: 2019Q3

REPORT INFORMATION
  Report Type: Spontaneous
  Country: IT (occurrence: IT)
  Receive Date: 20190715
  Receipt Date: 20190925
  Transmission Date: 20191004
  Serious: Yes (Hospitalization, Other)
  Sender: FDA-Public Use
  Company Number: IT-SA-2019SA186967

PATIENT
  Sex: Male

DRUGS (9)
  1. PANTOPRAZOLE [Concomitant]
     Active Substance: PANTOPRAZOLE
  2. DELAPRIDE [Concomitant]
     Active Substance: DELAPRIL HYDROCHLORIDE\INDAPAMIDE
  3. CONGESCOR [Concomitant]
     Active Substance: BISOPROLOL
  4. FREQUIL [Concomitant]
     Active Substance: FLECAINIDE ACETATE
  5. SACCHAROMYCES BOULARDII [Concomitant]
     Active Substance: SACCHAROMYCES CEREVISIAE
  6. FOLIN [FOLIC ACID] [Concomitant]
  7. DUPIXENT [Suspect]
     Active Substance: DUPILUMAB
     Dosage: 600 MG, 1X
     Dates: start: 20190625, end: 20190625
  8. PRADAXA [Concomitant]
     Active Substance: DABIGATRAN ETEXILATE MESYLATE
  9. PROSTADEP [Concomitant]
     Indication: SUPPLEMENTATION THERAPY

REACTIONS (5)
  - Pyrexia [Unknown]
  - Chills [Unknown]
  - Sepsis [Recovered/Resolved]
  - Staphylococcal infection [Unknown]
  - Urinary tract infection [Unknown]

NARRATIVE: CASE EVENT DATE: 20190627
